FAERS Safety Report 13775535 (Version 2)
Quarter: 2019Q1

REPORT INFORMATION
  Report Type: Spontaneous
  Country: DE (occurrence: BE)
  Receive Date: 20170721
  Receipt Date: 20190228
  Transmission Date: 20190417
  Serious: Yes (Death)
  Sender: FDA-Public Use
  Company Number: DE-SA-2017SA122845

PATIENT
  Age: 2 Year

DRUGS (3)
  1. HELIUM. [Suspect]
     Active Substance: HELIUM
     Dosage: UNK UNK,UNK
     Route: 055
  2. LIDOCAINE. [Suspect]
     Active Substance: LIDOCAINE
     Dosage: UNK UNK,UNK
     Route: 065
  3. DOXYLAMINE SUCCINATE. [Suspect]
     Active Substance: DOXYLAMINE SUCCINATE
     Dosage: UNK UNK,UNK
     Route: 065

REACTIONS (3)
  - Asphyxia [Fatal]
  - Drug level increased [Unknown]
  - Sedation [Fatal]
